FAERS Safety Report 21416134 (Version 1)
Quarter: 2022Q4

REPORT INFORMATION
  Report Type: Spontaneous
  Country: US (occurrence: US)
  Receive Date: 20221006
  Receipt Date: 20221006
  Transmission Date: 20230113
  Serious: No
  Sender: FDA-Public Use
  Company Number: US-ALLERGAN-2139233US

PATIENT
  Age: 21 Year
  Sex: Male
  Weight: 68.027 kg

DRUGS (2)
  1. VRAYLAR [Suspect]
     Active Substance: CARIPRAZINE
     Indication: Bipolar disorder
     Dosage: 3 MG, QD
     Route: 048
     Dates: start: 2019
  2. VRAYLAR [Suspect]
     Active Substance: CARIPRAZINE
     Indication: Attention deficit hyperactivity disorder

REACTIONS (1)
  - Product use in unapproved indication [Unknown]
